FAERS Safety Report 7683181-6 (Version None)
Quarter: 2011Q3

REPORT INFORMATION
  Report Type: 
  Country: None (occurrence: None)
  Receive Date: 20110815
  Receipt Date: 20110809
  Transmission Date: 20111222
  Serious: Yes (Life-Threatening, Hospitalization, Other)
  Sender: FDA-Public Use
  Company Number: IT-ASTRAZENECA-2011SE47487

PATIENT
  Age: 36 Year
  Sex: Male

DRUGS (5)
  1. FLUOXETINE [Suspect]
  2. ATENOLOL [Suspect]
     Dosage: TOTAL ESTIMATED AMOUNT OF 10 G
  3. SERTRALINE HYDROCHLORIDE [Suspect]
  4. LACIDIPINE [Suspect]
  5. NIFEDIPINE [Suspect]

REACTIONS (17)
  - CARDIAC ARREST [None]
  - MULTI-ORGAN FAILURE [None]
  - COORDINATION ABNORMAL [None]
  - RHABDOMYOLYSIS [None]
  - HAEMODYNAMIC INSTABILITY [None]
  - METABOLIC ACIDOSIS [None]
  - OVERDOSE [None]
  - RENAL FAILURE [None]
  - VENTRICULAR HYPOKINESIA [None]
  - PSYCHOMOTOR SKILLS IMPAIRED [None]
  - DYSPNOEA [None]
  - ATAXIA [None]
  - TOXICITY TO VARIOUS AGENTS [None]
  - COMA [None]
  - SHOCK [None]
  - CARDIAC FAILURE [None]
  - APHASIA [None]
